FAERS Safety Report 11563128 (Version 1)
Quarter: 2015Q3

REPORT INFORMATION
  Report Type: Spontaneous
  Country: US (occurrence: US)
  Receive Date: 20150916
  Receipt Date: 20150916
  Transmission Date: 20151125
  Serious: No
  Sender: FDA-Public Use
  Company Number: US-ELI_LILLY_AND_COMPANY-US200901001414

PATIENT
  Sex: Female

DRUGS (8)
  1. CALCITONIN [Concomitant]
     Active Substance: CALCITONIN
  2. FORTEO [Suspect]
     Active Substance: TERIPARATIDE
     Indication: OSTEOPOROSIS
     Dosage: UNK, UNK
     Dates: start: 20080414
  3. FORTEO [Suspect]
     Active Substance: TERIPARATIDE
     Dosage: UNK, UNK
  4. ESTRADIOL. [Concomitant]
     Active Substance: ESTRADIOL
  5. CALCIUM [Concomitant]
     Active Substance: CALCIUM
     Dosage: 500 MG, 3/D
  6. FLUORIDE [Concomitant]
     Active Substance: SODIUM FLUORIDE
  7. FORTEO [Suspect]
     Active Substance: TERIPARATIDE
     Dosage: UNK, UNK
  8. FORTEO [Suspect]
     Active Substance: TERIPARATIDE
     Dosage: UNK, UNK
     Dates: end: 200902

REACTIONS (5)
  - Body height decreased [Not Recovered/Not Resolved]
  - Bone density decreased [Unknown]
  - Spinal compression fracture [Unknown]
  - Anxiety [Unknown]
  - Scoliosis [Not Recovered/Not Resolved]

NARRATIVE: CASE EVENT DATE: 2008
